FAERS Safety Report 23125922 (Version 1)
Quarter: 2023Q4

REPORT INFORMATION
  Report Type: Spontaneous
  Country: US (occurrence: US)
  Receive Date: 20231030
  Receipt Date: 20231030
  Transmission Date: 20240109
  Serious: Yes (Other)
  Sender: FDA-Public Use
  Company Number: US-NAPPMUNDI-GBR-2023-0111692

PATIENT
  Age: 55 Year
  Sex: Male

DRUGS (3)
  1. MORPHINE SULFATE [Suspect]
     Active Substance: MORPHINE SULFATE
     Indication: Analgesic therapy
     Dosage: 240 MCG/D (480 MCG/ML AT A RATE OF 0.5 ML/D) AND WAS TITRATED UP TO 600 MCG/D (1200 MCG/ML AT A RATE
     Route: 038
  2. MORPHINE SULFATE [Suspect]
     Active Substance: MORPHINE SULFATE
     Dosage: (0.6 MG/D) AND LOW CONCENTRATION (1.2 MG/ML)
     Route: 038
  3. MORPHINE SULFATE [Suspect]
     Active Substance: MORPHINE SULFATE
     Dosage: 750 MCG/D (1500 MCG/ML)
     Route: 065

REACTIONS (4)
  - Spinal cord compression [Unknown]
  - Catheter site granuloma [Unknown]
  - Sensory loss [Recovering/Resolving]
  - Therapeutic product effect incomplete [Unknown]
